FAERS Safety Report 13055487 (Version 1)
Quarter: 2016Q4

REPORT INFORMATION
  Report Type: Spontaneous
  Country: US (occurrence: US)
  Receive Date: 20161222
  Receipt Date: 20161222
  Transmission Date: 20170207
  Serious: Yes (Death)
  Sender: FDA-Public Use
  Company Number: US-BAYER-2016-236931

PATIENT
  Age: 99 Year
  Sex: Female

DRUGS (1)
  1. BAYER ASPIRIN [Suspect]
     Active Substance: ASPIRIN
     Indication: MIGRAINE
     Dosage: 1 DF, UNK

REACTIONS (2)
  - Death [Fatal]
  - Product use issue [Unknown]
